FAERS Safety Report 23340799 (Version 1)
Quarter: 2023Q4

REPORT INFORMATION
  Report Type: Spontaneous
  Country: US (occurrence: US)
  Receive Date: 20231227
  Receipt Date: 20231227
  Transmission Date: 20240110
  Serious: No
  Sender: FDA-Public Use
  Company Number: US-Ipsen Biopharmaceuticals, Inc.-2023-28145

PATIENT
  Age: 87 Year
  Sex: Male
  Weight: 92.7 kg

DRUGS (17)
  1. TAZVERIK [Suspect]
     Active Substance: TAZEMETOSTAT HYDROBROMIDE
     Indication: Malignant connective tissue neoplasm
     Route: 048
     Dates: start: 20231212
  2. ASPIRIN [Concomitant]
     Active Substance: ASPIRIN
  3. AUGMENTIN [Concomitant]
     Active Substance: AMOXICILLIN\CLAVULANATE POTASSIUM
  4. AVAPRO [Concomitant]
     Active Substance: IRBESARTAN
  5. CRESTOR [Concomitant]
     Active Substance: ROSUVASTATIN CALCIUM
  6. DIOVAN [Concomitant]
     Active Substance: VALSARTAN
  7. DOXYCYCLINE [Concomitant]
     Active Substance: DOXYCYCLINE
  8. FINASTERIDE [Concomitant]
     Active Substance: FINASTERIDE
  9. FISH OIL [Concomitant]
     Active Substance: FISH OIL
  10. IBUPROFEN [Concomitant]
     Active Substance: IBUPROFEN
  11. LIPITOR [Concomitant]
     Active Substance: ATORVASTATIN CALCIUM
  12. METHOCARBAMOL [Concomitant]
     Active Substance: METHOCARBAMOL
  13. VITAMINS [Concomitant]
     Active Substance: VITAMINS
  14. OXYCODONE [Concomitant]
     Active Substance: OXYCODONE
  15. RAPAFLO [Concomitant]
     Active Substance: SILODOSIN
  16. VITMAMIN B [Concomitant]
  17. VITAMIN D [Concomitant]
     Active Substance: VITAMIN D NOS

REACTIONS (1)
  - Fatigue [Not Recovered/Not Resolved]
